FAERS Safety Report 6034420-9 (Version None)
Quarter: 2009Q1

REPORT INFORMATION
  Report Type: 
  Country: None (occurrence: None)
  Receive Date: 20090112
  Receipt Date: 20090109
  Transmission Date: 20090719
  Serious: Yes (Death, Hospitalization)
  Sender: FDA-Public Use
  Company Number: A0763082A

PATIENT
  Age: 80 Year
  Sex: Male
  Weight: 72.3 kg

DRUGS (4)
  1. AVANDIA [Suspect]
     Dosage: 8MG PER DAY
     Route: 048
     Dates: start: 20010502, end: 20070402
  2. GLUCOPHAGE [Concomitant]
  3. METFORMIN HCL [Concomitant]
  4. GLYNASE [Concomitant]

REACTIONS (2)
  - CORONARY ARTERY DISEASE [None]
  - MYOCARDIAL INFARCTION [None]
